FAERS Safety Report 5734318-7 (Version None)
Quarter: 2008Q2

REPORT INFORMATION
  Report Type: 
  Country: None (occurrence: None)
  Receive Date: 20080507
  Receipt Date: 20080423
  Transmission Date: 20081010
  Serious: Yes (Other)
  Sender: FDA-Public Use
  Company Number: DSA_31042_2007

PATIENT
  Age: 63 Year
  Sex: Female

DRUGS (2)
  1. CARDIZEM [Suspect]
     Indication: HYPERTENSION
     Dosage: (DF ORAL) (120 MG TID TAKES 90 MG AND 30 MG TABLETS FOR DOSE OF 120 MG TID ORAL)
     Route: 048
     Dates: start: 19840101, end: 20070920
  2. CARDIZEM [Suspect]
     Indication: HYPERTENSION
     Dosage: (DF ORAL) (120 MG TID TAKES 90 MG AND 30 MG TABLETS FOR DOSE OF 120 MG TID ORAL)
     Route: 048
     Dates: start: 20070920

REACTIONS (5)
  - CONDITION AGGRAVATED [None]
  - FEELING JITTERY [None]
  - GINGIVAL SWELLING [None]
  - MYOCARDIAL INFARCTION [None]
  - PRINZMETAL ANGINA [None]
